FAERS Safety Report 10346259 (Version 1)
Quarter: 2014Q3

REPORT INFORMATION
  Report Type: Spontaneous
  Country: JP (occurrence: JP)
  Receive Date: 20140728
  Receipt Date: 20140728
  Transmission Date: 20150326
  Serious: Yes (Life-Threatening, Other)
  Sender: FDA-Public Use
  Company Number: JP-B.I. PHARMACEUTICALS,INC./RIDGEFIELD-2014-BI-34600NB

PATIENT
  Age: 83 Year
  Sex: Male
  Weight: 60 kg

DRUGS (4)
  1. PRAZAXA [Suspect]
     Active Substance: DABIGATRAN ETEXILATE MESYLATE
     Dosage: 150 MG
     Route: 048
     Dates: start: 20140710, end: 20140720
  2. NOVASTAN [Suspect]
     Active Substance: ARGATROBAN
     Indication: CEREBRAL INFARCTION
     Route: 065
     Dates: start: 20140708, end: 20140720
  3. EDARAVONE [Concomitant]
     Active Substance: EDARAVONE
     Route: 065
  4. PRAZAXA [Suspect]
     Active Substance: DABIGATRAN ETEXILATE MESYLATE
     Indication: CEREBRAL INFARCTION
     Dosage: 110 MG
     Route: 048
     Dates: start: 20140708, end: 20140709

REACTIONS (7)
  - Haematemesis [Unknown]
  - Adenocarcinoma gastric [Unknown]
  - Decreased appetite [Unknown]
  - Vomiting [Unknown]
  - Metastasis [Unknown]
  - Gastric haemorrhage [Unknown]
  - Disseminated intravascular coagulation [Unknown]

NARRATIVE: CASE EVENT DATE: 20140717
